FAERS Safety Report 14759792 (Version 7)
Quarter: 2018Q4

REPORT INFORMATION
  Report Type: Spontaneous
  Country: CA (occurrence: CA)
  Receive Date: 20180413
  Receipt Date: 20181211
  Transmission Date: 20190204
  Serious: Yes (Hospitalization, Other)
  Sender: FDA-Public Use
  Company Number: CA-PFIZER INC-2018139192

PATIENT
  Age: 61 Year
  Sex: Female

DRUGS (27)
  1. PREDNISONE. [Concomitant]
     Active Substance: PREDNISONE
     Dosage: 3 DF, UNK
  2. PREDNISONE. [Concomitant]
     Active Substance: PREDNISONE
     Dosage: 10 MG, (THEN 7.5 MG, THEN 5 MG OVER 3 WEEKS, THEN STOP)
  3. PLAQUENIL [Concomitant]
     Active Substance: HYDROXYCHLOROQUINE SULFATE
     Dosage: 400 MG, WEEKLY (EVERY MONDAY TO FRIDAY)
  4. ADVIL [Concomitant]
     Active Substance: IBUPROFEN
     Dosage: UNK
  5. PREDNISONE. [Concomitant]
     Active Substance: PREDNISONE
     Dosage: 6 DF, UNK
  6. PREDNISONE. [Concomitant]
     Active Substance: PREDNISONE
     Dosage: 4 DF, UNK
  7. PLAQUENIL [Concomitant]
     Active Substance: HYDROXYCHLOROQUINE SULFATE
     Dosage: 2 DF, 1X/DAY (FOR 6 MONTH 30 WITH 5 REFILLS)
     Dates: start: 20171010
  8. DEPO-MEDROL [Concomitant]
     Active Substance: METHYLPREDNISOLONE ACETATE
     Dosage: 80 MG/ML, SINGLE (FOR 1 DAY)
     Dates: start: 20171207, end: 20171207
  9. PREDNISONE. [Concomitant]
     Active Substance: PREDNISONE
     Dosage: 2 DF, UNK
  10. NAPROXEN. [Concomitant]
     Active Substance: NAPROXEN
     Dosage: 250 MG, UNK
     Route: 048
  11. PREDNISONE. [Concomitant]
     Active Substance: PREDNISONE
     Dosage: 40 MG, DAILY (TAPER OVER 5 WEEKS)
  12. PLAQUENIL [Concomitant]
     Active Substance: HYDROXYCHLOROQUINE SULFATE
     Dosage: 200 MG, 2X/DAY (MONDAY TO FRIDAY)
  13. SULFASALAZINE. [Suspect]
     Active Substance: SULFASALAZINE
     Dosage: 500 MG, 2X/DAY
     Route: 048
     Dates: start: 20171122
  14. PREDNISONE. [Concomitant]
     Active Substance: PREDNISONE
     Dosage: 2 DF, UNK
  15. PREDNISONE. [Concomitant]
     Active Substance: PREDNISONE
     Dosage: 80 MG, UNK
     Route: 030
  16. NAPROXEN. [Concomitant]
     Active Substance: NAPROXEN
     Dosage: 375 MG, 2X/DAY
  17. NAPROXEN. [Concomitant]
     Active Substance: NAPROXEN
     Dosage: 500 MG, 2X/DAY
     Dates: start: 20170925
  18. APO-PREDNISONE [Concomitant]
     Active Substance: PREDNISONE
     Dosage: 8 DF, 1X/DAY (FOR 1 WEEK) - WITH 3 REFILLS
     Dates: start: 20171010
  19. SULFASALAZINE. [Suspect]
     Active Substance: SULFASALAZINE
     Indication: RHEUMATOID ARTHRITIS
     Dosage: 500 MG, 3X/DAY
     Route: 048
  20. SULFASALAZINE. [Suspect]
     Active Substance: SULFASALAZINE
     Dosage: 1500 MG, 2X/DAY
     Route: 048
  21. SULFASALAZINE. [Suspect]
     Active Substance: SULFASALAZINE
     Dosage: 1 G, 2X/DAY
     Route: 048
  22. PREDNISONE. [Concomitant]
     Active Substance: PREDNISONE
     Dosage: 8 DF, UNK
  23. PREDNISONE. [Concomitant]
     Active Substance: PREDNISONE
     Dosage: 4 DF, UNK
  24. APO-PREDNISONE [Concomitant]
     Active Substance: PREDNISONE
     Dosage: 5 MG, 1X/DAY (1 MONTH 30)
     Dates: start: 20180220
  25. SULFASALAZINE. [Suspect]
     Active Substance: SULFASALAZINE
     Dosage: UNK
     Route: 048
     Dates: start: 2018
  26. PREDNISONE. [Concomitant]
     Active Substance: PREDNISONE
     Dosage: 2.5 MG, UNK
  27. PREDNISONE. [Concomitant]
     Active Substance: PREDNISONE
     Dosage: 2 DF, UNK

REACTIONS (18)
  - Tooth abscess [Not Recovered/Not Resolved]
  - Drug intolerance [Unknown]
  - Pain in extremity [Unknown]
  - Condition aggravated [Recovering/Resolving]
  - Product dose omission [Unknown]
  - Snoring [Unknown]
  - Blood calcium [Unknown]
  - Nausea [Recovering/Resolving]
  - Vitamin D decreased [Unknown]
  - Musculoskeletal stiffness [Unknown]
  - Insomnia [Unknown]
  - Nasopharyngitis [Unknown]
  - Autoimmune hepatitis [Unknown]
  - Transaminases increased [Unknown]
  - Vomiting [Recovering/Resolving]
  - Liver function test increased [Recovering/Resolving]
  - Drug effect incomplete [Unknown]
  - Malaise [Not Recovered/Not Resolved]
